FAERS Safety Report 5731764-2 (Version None)
Quarter: 2008Q2

REPORT INFORMATION
  Report Type: 
  Country: None (occurrence: None)
  Receive Date: 20080508
  Receipt Date: 20080506
  Transmission Date: 20081010
  Serious: Yes (Life-Threatening)
  Sender: FDA-Public Use
  Company Number: US-GILEAD-2008-0016355

PATIENT
  Sex: Male
  Weight: 85.352 kg

DRUGS (5)
  1. VIREAD [Suspect]
     Indication: HIV INFECTION
     Route: 048
     Dates: end: 20080309
  2. TRUVADA [Suspect]
     Indication: HIV INFECTION
     Route: 048
     Dates: start: 20080310, end: 20080404
  3. LEXIVA [Concomitant]
     Indication: HIV INFECTION
     Dates: end: 20080309
  4. EPZICOM [Concomitant]
     Indication: HIV INFECTION
     Dates: end: 20080309
  5. KALETRA [Concomitant]
     Indication: HIV INFECTION
     Route: 048
     Dates: start: 20080310, end: 20080404

REACTIONS (3)
  - ASTHENIA [None]
  - NEPHRITIS INTERSTITIAL [None]
  - RENAL FAILURE ACUTE [None]
